FAERS Safety Report 10478686 (Version 1)
Quarter: 2014Q3

REPORT INFORMATION
  Report Type: Report from Study
  Country: CA (occurrence: CA)
  Receive Date: 20140926
  Receipt Date: 20140926
  Transmission Date: 20150326
  Serious: Yes (Death)
  Sender: FDA-Public Use
  Company Number: CA-BRISTOL-MYERS SQUIBB COMPANY-21434337

PATIENT
  Age: 67 Year
  Sex: Male

DRUGS (10)
  1. CRESTOR [Concomitant]
     Active Substance: ROSUVASTATIN CALCIUM
  2. MELOXICAM. [Concomitant]
     Active Substance: MELOXICAM
  3. ORENCIA [Suspect]
     Active Substance: ABATACEPT
     Indication: RHEUMATOID ARTHRITIS
     Route: 042
     Dates: start: 20110819, end: 20140829
  4. RABEPRAZOLE [Concomitant]
     Active Substance: RABEPRAZOLE
  5. RAMIPRIL. [Concomitant]
     Active Substance: RAMIPRIL
  6. EZETROL [Concomitant]
     Active Substance: EZETIMIBE
  7. BISOPROLOL [Concomitant]
     Active Substance: BISOPROLOL
  8. SULFASALAZINE. [Concomitant]
     Active Substance: SULFASALAZINE
  9. ASPIRIN. [Concomitant]
     Active Substance: ASPIRIN
  10. FOLIC ACID. [Concomitant]
     Active Substance: FOLIC ACID

REACTIONS (1)
  - Death [Fatal]
